FAERS Safety Report 7435537-4 (Version None)
Quarter: 2011Q2

REPORT INFORMATION
  Report Type: 
  Country: None (occurrence: None)
  Receive Date: 20110425
  Receipt Date: 20110420
  Transmission Date: 20111010
  Serious: Yes (Other)
  Sender: FDA-Public Use
  Company Number: US-ELI_LILLY_AND_COMPANY-US201104006172

PATIENT
  Sex: Female
  Weight: 79.365 kg

DRUGS (7)
  1. BYETTA [Suspect]
     Dosage: 10 UG, BID
     Route: 058
     Dates: end: 20110401
  2. GLYBURIDE AND METFORMIN HCL [Concomitant]
     Indication: TYPE 2 DIABETES MELLITUS
     Dosage: UNK, BID
     Route: 048
  3. CRESTOR [Concomitant]
     Indication: BLOOD CHOLESTEROL INCREASED
     Dosage: 20 MG, QD
     Route: 048
  4. MOTRIN [Concomitant]
     Indication: BACK PAIN
     Dosage: UNK, PRN
     Route: 048
  5. BYETTA [Suspect]
     Indication: TYPE 2 DIABETES MELLITUS
     Dosage: 5 UG, BID
     Route: 058
  6. DIOVAN HCT [Concomitant]
     Indication: HYPERTENSION
     Dosage: UNK, QD
     Route: 048
  7. TRILIPIX [Concomitant]
     Indication: BLOOD TRIGLYCERIDES INCREASED
     Dosage: 135 MG, QD
     Route: 048

REACTIONS (8)
  - ABDOMINAL DISTENSION [None]
  - GASTROINTESTINAL SOUNDS ABNORMAL [None]
  - ABDOMINAL PAIN [None]
  - NAUSEA [None]
  - PANCREATITIS [None]
  - APPETITE DISORDER [None]
  - WEIGHT DECREASED [None]
  - PANCREATIC ENZYMES INCREASED [None]
